FAERS Safety Report 21452513 (Version 3)
Quarter: 2022Q4

REPORT INFORMATION
  Report Type: Spontaneous
  Country: FR (occurrence: FR)
  Receive Date: 20221013
  Receipt Date: 20221027
  Transmission Date: 20230113
  Serious: Yes (Death, Life-Threatening, Hospitalization)
  Sender: FDA-Public Use
  Company Number: FR-NOVARTISPH-NVSC2022FR231038

PATIENT
  Age: 64 Year
  Sex: Male

DRUGS (5)
  1. PERINDOPRIL ERBUMINE [Suspect]
     Active Substance: PERINDOPRIL ERBUMINE
     Indication: Product used for unknown indication
     Dosage: 64 MG, QD, 16 TABLETS, SINGLE INTAKE
     Route: 048
  2. METFORMIN HYDROCHLORIDE [Suspect]
     Active Substance: METFORMIN HYDROCHLORIDE
     Indication: Product used for unknown indication
     Dosage: 11500 MG, QD, 23 TABLETS, SINGLE INTAKE
     Route: 048
  3. ACETAMINOPHEN [Suspect]
     Active Substance: ACETAMINOPHEN
     Indication: Product used for unknown indication
     Dosage: 31 G, QD, 31 TABLETS, SINGLE INTAKE
     Route: 048
  4. COLCHICINE [Suspect]
     Active Substance: COLCHICINE
     Indication: Product used for unknown indication
     Dosage: 11 MG, 11 TABLETS SINGLE INTAKE
     Route: 048
  5. DIAZEPAM [Suspect]
     Active Substance: DIAZEPAM
     Indication: Product used for unknown indication
     Dosage: 100 MG (10 TABLETS SINGLE INTAKE)
     Route: 065

REACTIONS (8)
  - Cardiogenic shock [Fatal]
  - Cardiac arrest [Fatal]
  - Intentional overdose [Fatal]
  - Conduction disorder [Fatal]
  - Multiple organ dysfunction syndrome [Fatal]
  - Shock [Fatal]
  - Sinoatrial block [Not Recovered/Not Resolved]
  - Atrioventricular block [Not Recovered/Not Resolved]

NARRATIVE: CASE EVENT DATE: 20140101
